FAERS Safety Report 5546728-1 (Version None)
Quarter: 2007Q4

REPORT INFORMATION
  Report Type: 
  Country: None (occurrence: None)
  Receive Date: 20071123
  Receipt Date: 20070607
  Transmission Date: 20080405
  Serious: Yes (Hospitalization, Disabling, Other)
  Sender: FDA-Public Use
  Company Number: US-JNJFOC-20061203824

PATIENT
  Age: 55 Year
  Sex: Female
  Weight: 62.1428 kg

DRUGS (12)
  1. LEVAQUIN [Suspect]
     Indication: BRONCHITIS
     Dosage: 500 MG, 1 IN 1 DAY, ORAL
     Route: 048
     Dates: start: 20021024, end: 20021029
  2. LEVAQUIN [Suspect]
     Indication: UPPER RESPIRATORY TRACT INFECTION
     Dosage: 500 MG, 1 IN 1 DAY, ORAL
     Route: 048
     Dates: start: 20021024, end: 20021029
  3. PREDNISONE [Concomitant]
  4. LODINE [Concomitant]
  5. ALDACTONE [Concomitant]
  6. HYDROCHLOROTHIAZIDE [Concomitant]
  7. ESTRADIOL [Concomitant]
  8. DARVOCET [Concomitant]
  9. ASPIRIN [Concomitant]
  10. NEXIUM [Concomitant]
  11. INDERAL [Concomitant]
  12. PHENERGAN [Concomitant]

REACTIONS (2)
  - TENDON RUPTURE [None]
  - TENDONITIS [None]
